FAERS Safety Report 10252114 (Version 1)
Quarter: 2014Q2

REPORT INFORMATION
  Report Type: Spontaneous
  Country: MX (occurrence: MX)
  Receive Date: 20140623
  Receipt Date: 20140623
  Transmission Date: 20141212
  Serious: Yes (Death, Other)
  Sender: FDA-Public Use
  Company Number: MX-JNJFOC-20140614921

PATIENT
  Age: 70 Year
  Sex: 0

DRUGS (4)
  1. REMICADE [Suspect]
     Indication: ANKYLOSING SPONDYLITIS
     Dosage: SECOND DOSE OF INFLIXIMAB.
     Route: 042
  2. REMICADE [Suspect]
     Indication: ANKYLOSING SPONDYLITIS
     Route: 042
  3. ENALAPRIL [Concomitant]
     Route: 065
  4. CELECOXIB [Concomitant]
     Route: 065

REACTIONS (6)
  - Demyelination [Fatal]
  - Pancytopenia [Fatal]
  - Hepatitis fulminant [Fatal]
  - Cardiac failure [Fatal]
  - Pericardial effusion [Fatal]
  - Atrial fibrillation [Unknown]
